FAERS Safety Report 11489220 (Version 1)
Quarter: 2015Q3

REPORT INFORMATION
  Report Type: Spontaneous
  Country: US (occurrence: US)
  Receive Date: 20150910
  Receipt Date: 20150910
  Transmission Date: 20151125
  Serious: No
  Sender: FDA-Public Use
  Company Number: US-BAYER-2015-419328

PATIENT
  Age: 84 Year
  Sex: Female
  Weight: 113.38 kg

DRUGS (3)
  1. VITAMIN D [Concomitant]
     Active Substance: CHOLECALCIFEROL
     Dosage: UNK
  2. OMEGA 3 [Concomitant]
     Active Substance: OMEGA-3 FATTY ACIDS
     Dosage: UNK
  3. ALEVE [Suspect]
     Active Substance: NAPROXEN SODIUM
     Indication: INFLAMMATION
     Dosage: 1 DF, BID
     Route: 048
     Dates: start: 201508

REACTIONS (1)
  - Product use issue [Unknown]

NARRATIVE: CASE EVENT DATE: 201508
